FAERS Safety Report 7907409-X (Version None)
Quarter: 2011Q4

REPORT INFORMATION
  Report Type: 
  Country: None (occurrence: None)
  Receive Date: 20111110
  Receipt Date: 20110628
  Transmission Date: 20120403
  Serious: Yes (Hospitalization)
  Sender: FDA-Public Use
  Company Number: AT-CEPHALON-2011005742

PATIENT
  Sex: Male

DRUGS (2)
  1. BENDAMUSTINE HCL (MANUFACTURER UNKNOWN) [Suspect]
     Indication: DIFFUSE LARGE B-CELL LYMPHOMA STAGE II
     Route: 042
     Dates: start: 20080821, end: 20080920
  2. RITUXIMAB [Concomitant]
     Indication: DIFFUSE LARGE B-CELL LYMPHOMA
     Dates: start: 20080821, end: 20080919

REACTIONS (1)
  - INTERSTITIAL LUNG DISEASE [None]
